FAERS Safety Report 8199657 (Version 3)
Quarter: 2013Q2

REPORT INFORMATION
  Report Type: Spontaneous
  Country: JP (occurrence: JP)
  Receive Date: 20111025
  Receipt Date: 20130531
  Transmission Date: 20140414
  Serious: Yes (Other)
  Sender: FDA-Public Use
  Company Number: JP-ALLERGAN-1113894US

PATIENT
  Age: 72 Year
  Sex: Female

DRUGS (3)
  1. LUMIGAN [Suspect]
     Indication: OPEN ANGLE GLAUCOMA
     Dosage: 1 GTT, QD
     Route: 047
     Dates: start: 20100921, end: 20110404
  2. TIMOLOL MALEATE 0.5% SOL [Suspect]
     Indication: GLAUCOMA
     Dosage: 1 GTT, BID
     Route: 047
     Dates: start: 20110308, end: 20110404
  3. AZOPT [Concomitant]
     Dosage: UNK

REACTIONS (5)
  - Intraocular pressure increased [Unknown]
  - Corneal erosion [Recovering/Resolving]
  - Punctate keratitis [Unknown]
  - Foreign body sensation in eyes [Unknown]
  - Drug ineffective [Unknown]
